FAERS Safety Report 6881905-9 (Version None)
Quarter: 2010Q3

REPORT INFORMATION
  Report Type: 
  Country: None (occurrence: None)
  Receive Date: 20100727
  Receipt Date: 20100715
  Transmission Date: 20110219
  Serious: Yes (Hospitalization, Disabling, Other)
  Sender: FDA-Public Use
  Company Number: 2008-183374-NL

PATIENT
  Age: 33 Year
  Sex: Female
  Weight: 90.7 kg

DRUGS (9)
  1. NUVARING [Suspect]
     Indication: DYSMENORRHOEA
     Dosage: 1 DF; QM;
     Dates: start: 20060501, end: 20060801
  2. NUVARING [Suspect]
     Indication: MENOMETRORRHAGIA
     Dosage: 1 DF; QM;
     Dates: start: 20060501, end: 20060801
  3. NUVARING [Suspect]
     Indication: MENSTRUATION IRREGULAR
     Dosage: 1 DF; QM;
     Dates: start: 20060501, end: 20060801
  4. TYLENOL PM [Concomitant]
  5. KEFLEX [Concomitant]
  6. HYDROCHLOROTHIAZIDE [Concomitant]
  7. PROMETHAZINE [Concomitant]
  8. OXYCODONE HCL AND ACETAMINOPHEN [Concomitant]
  9. IBUPROFEN [Concomitant]

REACTIONS (22)
  - ATELECTASIS [None]
  - CONCUSSION [None]
  - CONTUSION [None]
  - DEEP VEIN THROMBOSIS [None]
  - FALL [None]
  - HEADACHE [None]
  - HEART RATE INCREASED [None]
  - HYPERTENSION [None]
  - INTERNATIONAL NORMALISED RATIO INCREASED [None]
  - LEUKOCYTOSIS [None]
  - MENORRHAGIA [None]
  - MICROCYTIC ANAEMIA [None]
  - MUSCLE STRAIN [None]
  - NEOPLASM [None]
  - PAIN [None]
  - PLEURAL EFFUSION [None]
  - PLEURISY [None]
  - PNEUMONIA [None]
  - PROTHROMBIN TIME PROLONGED [None]
  - PULMONARY EMBOLISM [None]
  - PYREXIA [None]
  - RESPIRATORY RATE INCREASED [None]
